FAERS Safety Report 8210239-5 (Version None)
Quarter: 2012Q1

REPORT INFORMATION
  Report Type: 
  Country: None (occurrence: None)
  Receive Date: 20120314
  Receipt Date: 20110919
  Transmission Date: 20120608
  Serious: No
  Sender: FDA-Public Use
  Company Number: US-ASTRAZENECA-2010SE38772

PATIENT
  Age: 76 Year
  Sex: Female
  Weight: 68 kg

DRUGS (22)
  1. TOPROL-XL [Suspect]
     Indication: HYPERTENSION
     Route: 048
     Dates: start: 20090101
  2. TOPROL-XL [Suspect]
     Route: 048
     Dates: start: 20090101
  3. TOPROL-XL [Suspect]
     Route: 048
     Dates: start: 20090101
  4. TOPROL-XL [Suspect]
     Dosage: 50MG DAILY AND 25MG EVERY OTHER DAY
     Route: 048
     Dates: start: 20100801
  5. TOPROL-XL [Suspect]
     Dosage: 50MG DAILY AND 25MG EVERY OTHER DAY
     Route: 048
     Dates: start: 20100801
  6. TOPROL-XL [Suspect]
     Route: 048
  7. TOPROL-XL [Suspect]
     Route: 048
  8. TOPROL-XL [Suspect]
     Route: 048
  9. TOPROL-XL [Suspect]
     Indication: HEADACHE
     Route: 048
     Dates: start: 20090101
  10. TOPROL-XL [Suspect]
     Route: 048
     Dates: start: 20090101
  11. TOPROL-XL [Suspect]
     Route: 048
     Dates: start: 20090101
  12. ZOCOR [Concomitant]
     Indication: BLOOD CHOLESTEROL ABNORMAL
  13. TOPROL-XL [Suspect]
     Indication: MIGRAINE
     Route: 048
     Dates: start: 20090101
  14. TOPROL-XL [Suspect]
     Dosage: 50MG DAILY AND 25MG EVERY OTHER DAY
     Route: 048
     Dates: start: 20100801
  15. TOPROL-XL [Suspect]
     Route: 048
  16. TOPROL-XL [Suspect]
     Dosage: 50MG DAILY AND 25MG EVERY OTHER DAY
     Route: 048
     Dates: start: 20100801
  17. TOPROL-XL [Suspect]
     Route: 048
  18. ZOCOR [Concomitant]
     Indication: BLOOD CHOLESTEROL INCREASED
  19. TOPROL-XL [Suspect]
     Route: 048
     Dates: start: 20090101
  20. TOPROL-XL [Suspect]
     Indication: BLOOD PRESSURE ABNORMAL
     Route: 048
     Dates: start: 20090101
  21. TOPROL-XL [Suspect]
     Dosage: 50MG DAILY AND 25MG EVERY OTHER DAY
     Route: 048
     Dates: start: 20100801
  22. TOPROL-XL [Suspect]
     Route: 048
     Dates: start: 20090101

REACTIONS (14)
  - MUSCULOSKELETAL STIFFNESS [None]
  - PERIPHERAL COLDNESS [None]
  - INCREASED UPPER AIRWAY SECRETION [None]
  - DYSGEUSIA [None]
  - SLEEP DISORDER DUE TO GENERAL MEDICAL CONDITION, INSOMNIA TYPE [None]
  - LARYNGITIS [None]
  - PAIN IN EXTREMITY [None]
  - THERAPEUTIC RESPONSE DECREASED [None]
  - MIGRAINE [None]
  - PARAESTHESIA [None]
  - FATIGUE [None]
  - DRUG EFFECT DECREASED [None]
  - COUGH [None]
  - HYPOAESTHESIA [None]
